FAERS Safety Report 8267384-8 (Version None)
Quarter: 2012Q2

REPORT INFORMATION
  Report Type: 
  Country: None (occurrence: None)
  Receive Date: 20120409
  Receipt Date: 20120403
  Transmission Date: 20120825
  Serious: Yes (Other)
  Sender: FDA-Public Use
  Company Number: PHHY2011US25713

PATIENT
  Sex: Female

DRUGS (6)
  1. CALCIUM CARBONATE [Concomitant]
  2. NIACIN [Concomitant]
  3. METOPROLOL TARTRATE [Concomitant]
     Dosage: 50 MG
  4. RECLAST [Suspect]
     Dosage: 5 MG, YEARLY
     Route: 042
     Dates: start: 20110322
  5. VITAMIN TAB [Concomitant]
  6. AMLODIPINE [Concomitant]
     Dosage: 5 MG

REACTIONS (5)
  - HERPES ZOSTER [None]
  - SKIN BURNING SENSATION [None]
  - BLISTER [None]
  - ERYTHEMA [None]
  - BACK PAIN [None]
